FAERS Safety Report 22067944 (Version 1)
Quarter: 2023Q1

REPORT INFORMATION
  Report Type: Spontaneous
  Country: IN (occurrence: IN)
  Receive Date: 20230307
  Receipt Date: 20230307
  Transmission Date: 20230417
  Serious: Yes (Other)
  Sender: FDA-Public Use
  Company Number: IN-WOCKHARDT LIMITED-2023WLD000027

PATIENT
  Age: 4 Year
  Sex: Male
  Weight: 15 kg

DRUGS (1)
  1. ONDANSETRON [Suspect]
     Active Substance: ONDANSETRON
     Indication: Vomiting
     Dosage: 2 MILLIGRAM
     Route: 042

REACTIONS (3)
  - Hypoglycaemia [Recovered/Resolved]
  - Dystonia [Recovered/Resolved]
  - Seizure [Recovered/Resolved]
